FAERS Safety Report 8390714-3 (Version None)
Quarter: 2012Q2

REPORT INFORMATION
  Report Type: 
  Country: None (occurrence: None)
  Receive Date: 20120529
  Receipt Date: 20120516
  Transmission Date: 20120825
  Serious: Yes (Other)
  Sender: FDA-Public Use
  Company Number: US-JNJFOC-20120513774

PATIENT

DRUGS (6)
  1. BEVACIZUMAB [Suspect]
     Indication: BREAST CANCER
     Route: 042
  2. HORMONAL TREATMENT NOS [Concomitant]
     Indication: BREAST CANCER
     Route: 065
  3. TAXOL [Suspect]
     Indication: BREAST CANCER
     Route: 065
  4. CYCLOPHOSPHAMIDE [Suspect]
     Indication: BREAST CANCER
     Route: 065
  5. RADIATION THERAPY NOS [Concomitant]
     Indication: BREAST CANCER
     Route: 065
  6. DOXORUBICIN HYDROCHLORIDE [Suspect]
     Indication: BREAST CANCER
     Route: 042

REACTIONS (26)
  - CARDIAC DISORDER [None]
  - NEUTROPENIA [None]
  - RECTAL HAEMORRHAGE [None]
  - ANAEMIA [None]
  - ALANINE AMINOTRANSFERASE INCREASED [None]
  - PERIPHERAL SENSORY NEUROPATHY [None]
  - HEADACHE [None]
  - THROMBOSIS [None]
  - MYALGIA [None]
  - DISEASE PROGRESSION [None]
  - PROTEINURIA [None]
  - THROMBOCYTOPENIA [None]
  - EPISTAXIS [None]
  - HYPERSENSITIVITY [None]
  - FEBRILE NEUTROPENIA [None]
  - NAUSEA [None]
  - MUCOSAL INFLAMMATION [None]
  - ADVERSE DRUG REACTION [None]
  - ISCHAEMIA [None]
  - HYPERTENSION [None]
  - FATIGUE [None]
  - ASPARTATE AMINOTRANSFERASE INCREASED [None]
  - ARTHRALGIA [None]
  - LEUKOENCEPHALOPATHY [None]
  - EJECTION FRACTION DECREASED [None]
  - DYSPNOEA [None]
